FAERS Safety Report 22643172 (Version 1)
Quarter: 2023Q2

REPORT INFORMATION
  Report Type: Report from Study
  Country: FR (occurrence: None)
  Receive Date: 20230627
  Receipt Date: 20230627
  Transmission Date: 20230721
  Serious: Yes (Other)
  Sender: FDA-Public Use
  Company Number: FR-ROCHE-3372206

PATIENT
  Age: 63 Year
  Sex: Male
  Weight: 88 kg

DRUGS (2)
  1. TOCILIZUMAB [Suspect]
     Active Substance: TOCILIZUMAB
     Indication: Rheumatoid arthritis
     Route: 065
     Dates: start: 20220729, end: 20230602
  2. METHOTREXATE [Concomitant]
     Active Substance: METHOTREXATE
     Indication: Rheumatoid arthritis
     Dates: start: 20230512, end: 20230608

REACTIONS (1)
  - Pancreatic neoplasm [Not Recovered/Not Resolved]

NARRATIVE: CASE EVENT DATE: 20230530
